FAERS Safety Report 5530171-5 (Version None)
Quarter: 2007Q4

REPORT INFORMATION
  Report Type: 
  Country: None (occurrence: None)
  Receive Date: 20071130
  Receipt Date: 20071116
  Transmission Date: 20080405
  Serious: Yes (Other)
  Sender: FDA-Public Use
  Company Number: US-BAYER-200713094BWH

PATIENT
  Age: 71 Year
  Sex: Male
  Weight: 79 kg

DRUGS (11)
  1. AVELOX [Suspect]
     Indication: SINUSITIS
     Dosage: TOTAL DAILY DOSE: 400 MG  UNIT DOSE: 400 MG
     Route: 048
     Dates: start: 20070716, end: 20070722
  2. PROCARDIA XL [Concomitant]
     Route: 048
     Dates: start: 20070816
  3. PROCARDIA XL [Concomitant]
     Route: 048
  4. PREVACID [Concomitant]
     Route: 048
     Dates: end: 20070730
  5. ZOCOR [Concomitant]
     Route: 048
     Dates: end: 20070730
  6. DEPEN [Concomitant]
  7. NASONEX [Concomitant]
     Route: 045
     Dates: end: 20070730
  8. TYLENOL [Concomitant]
     Indication: PAIN
     Route: 048
  9. ADVIL LIQUI-GELS [Concomitant]
     Indication: PYREXIA
     Route: 048
  10. BENADRYL [Concomitant]
     Indication: PRURITUS
     Route: 048
  11. LASIX [Concomitant]
     Indication: JOINT SWELLING
     Route: 048

REACTIONS (21)
  - ARTHRALGIA [None]
  - ASTHENIA [None]
  - CHILLS [None]
  - CONJUNCTIVITIS [None]
  - DRUG TOXICITY [None]
  - EYE PAIN [None]
  - GAIT DISTURBANCE [None]
  - HEPATOTOXICITY [None]
  - INSOMNIA [None]
  - IRITIS [None]
  - JOINT SWELLING [None]
  - OEDEMA PERIPHERAL [None]
  - PAIN [None]
  - PAIN IN EXTREMITY [None]
  - PERIPHERAL COLDNESS [None]
  - PHOTOPHOBIA [None]
  - PRURITUS GENERALISED [None]
  - PYREXIA [None]
  - SKIN EXFOLIATION [None]
  - TREMOR [None]
  - WEIGHT DECREASED [None]
